FAERS Safety Report 16563235 (Version 1)
Quarter: 2019Q3

REPORT INFORMATION
  Report Type: Spontaneous
  Country: US (occurrence: US)
  Receive Date: 20190711
  Receipt Date: 20190711
  Transmission Date: 20191004
  Serious: Yes (Hospitalization)
  Sender: FDA-Public Use
  Company Number: PHHY2019US155177

PATIENT
  Age: 34 Year
  Sex: Female

DRUGS (3)
  1. MAGNESIUM [Suspect]
     Active Substance: MAGNESIUM
     Indication: ASTHMA
     Dosage: 2 G, UNK
     Route: 042
  2. METHYLPREDNISOLONE. [Suspect]
     Active Substance: METHYLPREDNISOLONE
     Indication: ASTHMA
     Dosage: 125 MG, UNK
     Route: 042
  3. ALBUTEROL. [Suspect]
     Active Substance: ALBUTEROL
     Indication: ASTHMA
     Dosage: 10 MG, QH
     Route: 065

REACTIONS (4)
  - Anxiety [Recovering/Resolving]
  - Wheezing [Recovering/Resolving]
  - Condition aggravated [Recovering/Resolving]
  - Dyspnoea [Recovering/Resolving]
